FAERS Safety Report 14382975 (Version 2)
Quarter: 2018Q1

REPORT INFORMATION
  Report Type: Spontaneous
  Country: CH (occurrence: CH)
  Receive Date: 20180114
  Receipt Date: 20180119
  Transmission Date: 20180509
  Serious: Yes (Hospitalization, Other)
  Sender: FDA-Public Use
  Company Number: CH-MYLANLABS-2017M1082572

PATIENT
  Age: 86 Year
  Sex: Female

DRUGS (22)
  1. DIGOXIN. [Interacting]
     Active Substance: DIGOXIN
     Dosage: 25 MG, QD
     Route: 048
     Dates: start: 20171117, end: 20171206
  2. BISOPROLOL [Suspect]
     Active Substance: BISOPROLOL
     Indication: PRODUCT USED FOR UNKNOWN INDICATION
     Dosage: 10 MG, QD
     Dates: end: 20171206
  3. PANTOZOL [Concomitant]
     Active Substance: PANTOPRAZOLE SODIUM
     Dosage: 40 MG, QD
  4. MOTILIUM [Concomitant]
     Active Substance: DOMPERIDONE
     Indication: PRODUCT USED FOR UNKNOWN INDICATION
     Dosage: 10 MG, QD
     Dates: start: 20171205
  5. METFIN [Concomitant]
     Active Substance: METFORMIN HYDROCHLORIDE
     Indication: PRODUCT USED FOR UNKNOWN INDICATION
     Dosage: UNK
     Dates: end: 20171121
  6. HUMALOG [Concomitant]
     Active Substance: INSULIN LISPRO
     Indication: PRODUCT USED FOR UNKNOWN INDICATION
  7. KALCIPOS-D3 500/800, FILMTABLETTEN [Interacting]
     Active Substance: CALCIUM CARBONATE\CHOLECALCIFEROL
     Indication: PRODUCT USED FOR UNKNOWN INDICATION
     Dosage: 1 DF, QD
     Dates: end: 20171206
  8. QUETIAPIN [Concomitant]
     Active Substance: QUETIAPINE
     Indication: PRODUCT USED FOR UNKNOWN INDICATION
  9. FRAGMIN [Concomitant]
     Active Substance: DALTEPARIN SODIUM
     Indication: PRODUCT USED FOR UNKNOWN INDICATION
     Dosage: 12500 IU, QD
  10. TOREM 2,5 TABLETTEN [Suspect]
     Active Substance: TORSEMIDE
     Indication: PRODUCT USED FOR UNKNOWN INDICATION
     Dosage: 2.5 MG, QD
  11. TOREM 2,5 TABLETTEN [Suspect]
     Active Substance: TORSEMIDE
     Dosage: 50 MG, UNK
     Dates: start: 20171122, end: 20171129
  12. ALDACTONE [Interacting]
     Active Substance: SPIRONOLACTONE
     Indication: PRODUCT USED FOR UNKNOWN INDICATION
     Dosage: 12.5 MG, QD
     Dates: end: 20171206
  13. DIGOXIN. [Interacting]
     Active Substance: DIGOXIN
     Indication: PRODUCT USED FOR UNKNOWN INDICATION
     Dosage: 5 MG, QD
     Route: 042
     Dates: start: 20171110, end: 20171110
  14. PANTOZOL [Concomitant]
     Active Substance: PANTOPRAZOLE SODIUM
     Indication: PRODUCT USED FOR UNKNOWN INDICATION
  15. TOREM 2,5 TABLETTEN [Suspect]
     Active Substance: TORSEMIDE
     Dosage: 30 MG, UNK
     Dates: start: 20171130, end: 20171205
  16. NOVALGIN (METAMIZOLE SODIUM) [Concomitant]
     Active Substance: METAMIZOLE SODIUM
     Indication: PRODUCT USED FOR UNKNOWN INDICATION
     Dosage: 20 DROPS
     Dates: end: 20171205
  17. ATORVASTATIN [Suspect]
     Active Substance: ATORVASTATIN
     Indication: PRODUCT USED FOR UNKNOWN INDICATION
     Dosage: 40 MG, QD
     Dates: end: 20171205
  18. AMLODIPIN                          /00972401/ [Concomitant]
     Active Substance: AMLODIPINE BESYLATE
     Indication: PRODUCT USED FOR UNKNOWN INDICATION
  19. HALDOL [Concomitant]
     Active Substance: HALOPERIDOL
     Indication: PRODUCT USED FOR UNKNOWN INDICATION
     Dates: start: 20171122
  20. DIGOXIN. [Interacting]
     Active Substance: DIGOXIN
     Dosage: 125 MG, QD
     Route: 048
     Dates: start: 20171111, end: 20171116
  21. INSULATARD                         /00646002/ [Concomitant]
     Active Substance: INSULIN HUMAN
     Indication: PRODUCT USED FOR UNKNOWN INDICATION
  22. TRIATEC                            /00885601/ [Concomitant]
     Active Substance: RAMIPRIL
     Indication: PRODUCT USED FOR UNKNOWN INDICATION
     Dosage: 5 MG, QD

REACTIONS (6)
  - Overdose [Unknown]
  - Drug interaction [Recovered/Resolved]
  - Toxicity to various agents [Unknown]
  - Acute kidney injury [Unknown]
  - Drug interaction [Recovered/Resolved]
  - Nodal arrhythmia [Recovered/Resolved]

NARRATIVE: CASE EVENT DATE: 2017
